FAERS Safety Report 5798362-6 (Version None)
Quarter: 2008Q3

REPORT INFORMATION
  Report Type: 
  Country: None (occurrence: None)
  Receive Date: 20080702
  Receipt Date: 20070831
  Transmission Date: 20090109
  Serious: No
  Sender: FDA-Public Use
  Company Number: A0653827A

PATIENT
  Age: 38 Year
  Sex: Male

DRUGS (3)
  1. PARNATE [Suspect]
     Indication: DEPRESSION
     Dosage: 10MG SIX TIMES PER DAY
     Route: 048
     Dates: start: 20040101
  2. LAMICTAL [Concomitant]
  3. RESTORIL [Concomitant]

REACTIONS (7)
  - ANGER [None]
  - ASTHENIA [None]
  - DECREASED APPETITE [None]
  - DRUG INEFFECTIVE [None]
  - FATIGUE [None]
  - PHARMACEUTICAL PRODUCT COMPLAINT [None]
  - WEIGHT INCREASED [None]
